FAERS Safety Report 8389274-2 (Version None)
Quarter: 2012Q2

REPORT INFORMATION
  Report Type: 
  Country: None (occurrence: None)
  Receive Date: 20120528
  Receipt Date: 20120516
  Transmission Date: 20120825
  Serious: Yes (Hospitalization)
  Sender: FDA-Public Use
  Company Number: MY-BRISTOL-MYERS SQUIBB COMPANY-16017352

PATIENT
  Age: 36 Year
  Sex: Male

DRUGS (4)
  1. ABILIFY [Suspect]
     Indication: SCHIZOPHRENIA
     Route: 048
     Dates: start: 20110622, end: 20110818
  2. HALOPERIDOL [Concomitant]
     Dosage: DOSE:5MG OM,10 MG ON
  3. BENZHEXOL [Concomitant]
  4. LORAZEPAM [Concomitant]

REACTIONS (1)
  - SCHIZOPHRENIA [None]
